FAERS Safety Report 20889348 (Version 1)
Quarter: 2022Q2

REPORT INFORMATION
  Report Type: Other
  Country: CH (occurrence: CH)
  Receive Date: 20220530
  Receipt Date: 20220530
  Transmission Date: 20220720
  Serious: Yes (Hospitalization, Other)
  Sender: FDA-Public Use
  Company Number: CH-ASTELLAS-2022US019253

PATIENT
  Age: 51 Year
  Sex: Female

DRUGS (7)
  1. TACROLIMUS [Suspect]
     Active Substance: TACROLIMUS
     Indication: Product used for unknown indication
     Dosage: 3 MG, ONCE DAILY (1-0-0-0, LONG-TERM UNTIL FURTHER NOTICE)
     Route: 048
  2. PANTOZOL [Suspect]
     Active Substance: PANTOPRAZOLE SODIUM
     Indication: Product used for unknown indication
     Dosage: 20 MG, ONCE DAILY (1-0-0-0, LONG-TERM UNTIL FURTHER NOTICE)
     Route: 048
  3. SURMONTIL [Suspect]
     Active Substance: TRIMIPRAMINE MALEATE
     Indication: Product used for unknown indication
     Dosage: UNK UNK, 25 DROPS PER DAY, FOR A LONG TIME UNTIL FURTHER NOTICE
     Route: 048
  4. METAMIZOLE [Suspect]
     Active Substance: METAMIZOLE
     Indication: Product used for unknown indication
     Dosage: 500 MG, AS NEEDED (1 PER DAY) (FOR A LONG TIME UNTIL FURTHER NOTICE)
     Route: 048
  5. INFLUENZA VIRUS VACCINE [Suspect]
     Active Substance: INFLUENZA VIRUS VACCINE
     Indication: Product used for unknown indication
     Dosage: UNK UNK, TOTAL DOSE
     Route: 065
     Dates: start: 20211222, end: 20211222
  6. SODIUM BICARBONATE [Concomitant]
     Active Substance: SODIUM BICARBONATE
     Indication: Product used for unknown indication
     Dosage: 500 MG, (1-0-1-0, TWICE DAILY UNTIL FURTHER NOTICE)
     Route: 048
     Dates: start: 20220112
  7. Neurodol [Concomitant]
     Indication: Product used for unknown indication
     Dosage: UNK, AS NEEDED (UNTIL FURTHER NOTICE)
     Route: 062
     Dates: start: 20220112

REACTIONS (3)
  - Normochromic normocytic anaemia [Recovering/Resolving]
  - Immune thrombocytopenia [Recovering/Resolving]
  - Thrombocytopenia [Recovering/Resolving]

NARRATIVE: CASE EVENT DATE: 20220101
